FAERS Safety Report 12386016 (Version 1)
Quarter: 2016Q2

REPORT INFORMATION
  Report Type: Spontaneous
  Country: US (occurrence: US)
  Receive Date: 20160519
  Receipt Date: 20160519
  Transmission Date: 20160815
  Serious: No
  Sender: FDA-Public Use
  Company Number: US-ENDO PHARMACEUTICALS INC.-2016-002328

PATIENT
  Age: 64 Year
  Sex: Female
  Weight: 70.37 kg

DRUGS (4)
  1. ARIPIPRAZOLE. [Concomitant]
     Active Substance: ARIPIPRAZOLE
     Indication: DISTURBANCE IN ATTENTION
  2. ARIPIPRAZOLE. [Concomitant]
     Active Substance: ARIPIPRAZOLE
     Indication: THINKING ABNORMAL
  3. SYNTHROID [Concomitant]
     Active Substance: LEVOTHYROXINE SODIUM
     Indication: THYROIDECTOMY
  4. LORAZEPAM TABLETS 1MG [Suspect]
     Active Substance: LORAZEPAM
     Indication: EMOTIONAL DISORDER
     Route: 048
     Dates: end: 20160324

REACTIONS (5)
  - Malaise [Not Recovered/Not Resolved]
  - Unevaluable event [Not Recovered/Not Resolved]
  - Drug ineffective [Not Recovered/Not Resolved]
  - Weight increased [Not Recovered/Not Resolved]
  - Judgement impaired [Not Recovered/Not Resolved]

NARRATIVE: CASE EVENT DATE: 201601
